FAERS Safety Report 6334757-X (Version None)
Quarter: 2009Q3

REPORT INFORMATION
  Report Type: 
  Country: None (occurrence: None)
  Receive Date: 20090831
  Receipt Date: 20090820
  Transmission Date: 20100115
  Serious: Yes (Other)
  Sender: FDA-Public Use
  Company Number: PHHY2009FR35289

PATIENT
  Sex: Male

DRUGS (6)
  1. VOLTAREN [Suspect]
     Dosage: UNK
     Dates: start: 20040101
  2. VOLTAREN [Suspect]
     Dosage: UNK
     Dates: start: 20090601
  3. VOLTAREN [Suspect]
     Dosage: UNK
     Dates: start: 20090624
  4. AMOXICILLIN [Concomitant]
  5. AERIUS [Concomitant]
  6. SINGULAIR [Concomitant]
     Dosage: 10 MG, UNK

REACTIONS (6)
  - ANGIOEDEMA [None]
  - ARTHRALGIA [None]
  - DYSPNOEA [None]
  - HYPERSENSITIVITY [None]
  - RASH [None]
  - URTICARIA [None]
